FAERS Safety Report 16706912 (Version 4)
Quarter: 2022Q2

REPORT INFORMATION
  Report Type: Spontaneous
  Country: US (occurrence: US)
  Receive Date: 20190815
  Receipt Date: 20220603
  Transmission Date: 20220720
  Serious: Yes (Death, Life-Threatening, Hospitalization, Other)
  Sender: FDA-Public Use
  Company Number: PHHY2018US202239

PATIENT
  Age: 3 Year
  Sex: Male
  Weight: 24 kg

DRUGS (11)
  1. KYMRIAH [Suspect]
     Active Substance: TISAGENLECLEUCEL
     Indication: B-cell type acute leukaemia
     Dosage: 23 ML, ONCE/SINGLE
     Route: 042
     Dates: start: 20180607, end: 20180607
  2. CYCLOPHOSPHAMIDE [Concomitant]
     Active Substance: CYCLOPHOSPHAMIDE
     Indication: Product used for unknown indication
     Dosage: 350 MG, QD (2 DAYS/CM)
     Route: 042
     Dates: start: 20180601, end: 20180602
  3. FLUDARABINE [Concomitant]
     Active Substance: FLUDARABINE PHOSPHATE
     Indication: Product used for unknown indication
     Dosage: 21 MG, QD (4 DAYS)
     Route: 042
     Dates: start: 20180601, end: 20180604
  4. BENADRYL [Concomitant]
     Active Substance: DIPHENHYDRAMINE HYDROCHLORIDE
     Indication: Nausea
     Dosage: 1 DF, Q6H
     Route: 048
  5. CETIRIZINE HYDROCHLORIDE [Concomitant]
     Active Substance: CETIRIZINE HYDROCHLORIDE
     Indication: Product used for unknown indication
     Dosage: 5 ML, QD
     Route: 048
  6. OXYCODONE [Concomitant]
     Active Substance: OXYCODONE
     Indication: Pain
     Dosage: 2.5 ML, Q4H
     Route: 048
  7. COTRIM-SANDOZ [Concomitant]
     Indication: Product used for unknown indication
     Dosage: 7.5 ML, BID (ON SATURDAY AND SUNDAY ONLY)
     Route: 048
  8. CALCIUM CARBONATE [Concomitant]
     Active Substance: CALCIUM CARBONATE
     Indication: Product used for unknown indication
     Dosage: 1 DF, Q6H
     Route: 048
  9. FLUCONAZOLE [Concomitant]
     Active Substance: FLUCONAZOLE
     Indication: Product used for unknown indication
     Dosage: 7.5 ML, QD
     Route: 048
  10. LIDOCAINE [Concomitant]
     Active Substance: LIDOCAINE
     Indication: Product used for unknown indication
     Dosage: UNK
     Route: 061
  11. ACETAMINOPHEN [Concomitant]
     Active Substance: ACETAMINOPHEN
     Indication: Pain
     Dosage: 7.8 ML, Q6H
     Route: 048

REACTIONS (27)
  - B-cell type acute leukaemia [Fatal]
  - Disease recurrence [Fatal]
  - Cytokine release syndrome [Recovered/Resolved]
  - Pyrexia [Unknown]
  - Hypotension [Unknown]
  - Tachycardia [Unknown]
  - Therapeutic response decreased [Unknown]
  - Gastrointestinal infection [Recovered/Resolved]
  - Neutrophil count increased [Unknown]
  - Blood sodium increased [Unknown]
  - Blood potassium decreased [Unknown]
  - Blood chloride increased [Unknown]
  - Blood urea nitrogen/creatinine ratio increased [Unknown]
  - Aspartate aminotransferase increased [Unknown]
  - Red blood cell count decreased [Unknown]
  - Lymphocyte count decreased [Unknown]
  - White blood cell count decreased [Unknown]
  - Platelet count decreased [Unknown]
  - Minimal residual disease [Unknown]
  - Haematocrit decreased [Unknown]
  - Haemoglobin decreased [Unknown]
  - Mouth haemorrhage [Unknown]
  - White blood cell count increased [Unknown]
  - Neutrophil count decreased [Unknown]
  - Mean cell haemoglobin decreased [Unknown]
  - Bone pain [Unknown]
  - Diarrhoea [Unknown]

NARRATIVE: CASE EVENT DATE: 20180611
